FAERS Safety Report 22346867 (Version 1)
Quarter: 2023Q2

REPORT INFORMATION
  Report Type: Spontaneous
  Country: US (occurrence: US)
  Receive Date: 20230520
  Receipt Date: 20230520
  Transmission Date: 20230722
  Serious: No
  Sender: FDA-Public Use
  Company Number: US-drreddys-SPO/USA/23/0164668

PATIENT
  Age: 20 Year

DRUGS (4)
  1. ACCUTANE [Suspect]
     Active Substance: ISOTRETINOIN
     Indication: Product used for unknown indication
     Dosage: RMA ISSUE DATES: 11 NOVEMBER 2022 01:27:14 PM, 16 DECEMBER 2022 09:35:56 AM
  2. ACCUTANE [Suspect]
     Active Substance: ISOTRETINOIN
     Dosage: RMA ISSUE DATES: 16 JANUARY 2023 09:35:56 AM, 23 FEBRUARY 2023 12:40:06 PM, 23 MARCH 2023 11:11:25 A
  3. ACCUTANE [Suspect]
     Active Substance: ISOTRETINOIN
     Dosage: RMA ISSUE DATES: 11 NOVEMBER 2022 01:27:14 PM, 16 DECEMBER 2022 09:35:56 AM, 16 JANUARY 2023 09:35:5
  4. ACCUTANE [Suspect]
     Active Substance: ISOTRETINOIN
     Dosage: RMA ISSUE DATES: 11 NOVEMBER 2022 01:27:14 PM, 16 DECEMBER 2022 09:35:56 AM

REACTIONS (2)
  - Bone pain [Unknown]
  - Arthralgia [Unknown]
